FAERS Safety Report 19963013 (Version 1)
Quarter: 2021Q4

REPORT INFORMATION
  Report Type: Spontaneous
  Country: US (occurrence: US)
  Receive Date: 20211014
  Receipt Date: 20211014
  Transmission Date: 20220303
  Serious: No
  Sender: FDA-Public Use
  Company Number: None

PATIENT
  Age: 33 Year
  Sex: Male
  Weight: 158.76 kg

DRUGS (1)
  1. ENBREL [Suspect]
     Active Substance: ETANERCEPT
     Indication: Psoriasis
     Dosage: INJECTED 50MG SUBCUTANEOUSLY TWO TIMES A WEEK 72 - 96 HOURS APART AS DIRECTED???OTHER FREQUENCY : UD
     Route: 058
     Dates: start: 202107

REACTIONS (1)
  - Localised infection [None]
